FAERS Safety Report 5514227-9 (Version None)
Quarter: 2007Q4

REPORT INFORMATION
  Report Type: 
  Country: None (occurrence: None)
  Receive Date: 20071113
  Receipt Date: 20071102
  Transmission Date: 20080405
  Serious: Yes (Other)
  Sender: FDA-Public Use
  Company Number: CZ-NOVOPROD-268645

PATIENT
  Sex: Female
  Weight: 54 kg

DRUGS (2)
  1. NOVORAPID [Suspect]
     Indication: DIABETES MELLITUS
     Dosage: 17 IU, QD
     Route: 058
     Dates: start: 20060401
  2. LEVEMIR [Suspect]
     Indication: DIABETES MELLITUS
     Dosage: 4 IU, QD
     Route: 058
     Dates: start: 20060401

REACTIONS (1)
  - ABORTION SPONTANEOUS [None]
